FAERS Safety Report 6395657-2 (Version None)
Quarter: 2009Q4

REPORT INFORMATION
  Report Type: 
  Country: None (occurrence: None)
  Receive Date: 20091009
  Receipt Date: 20091005
  Transmission Date: 20100525
  Serious: Yes (Other)
  Sender: FDA-Public Use
  Company Number: TN-AVENTIS-200916089EU

PATIENT
  Age: 24 Year
  Sex: Female

DRUGS (2)
  1. FUROSEMIDE [Suspect]
     Indication: GLOMERULONEPHRITIS
  2. PREDNISOLONE [Concomitant]
     Indication: GLOMERULONEPHRITIS

REACTIONS (1)
  - TOXIC EPIDERMAL NECROLYSIS [None]
